FAERS Safety Report 4689823-1 (Version None)
Quarter: 2005Q2

REPORT INFORMATION
  Report Type: 
  Country: None (occurrence: None)
  Receive Date: 20050608
  Receipt Date: 20040812
  Transmission Date: 20051028
  Serious: Yes (Hospitalization)
  Sender: FDA-Public Use
  Company Number: 377562

PATIENT
  Age: 14 Year
  Sex: Male
  Weight: 67.1 kg

DRUGS (1)
  1. ACCUTANE [Suspect]
     Indication: ACNE
     Dosage: ORAL
     Route: 048
     Dates: start: 20040715, end: 20040815

REACTIONS (6)
  - ARTHRALGIA [None]
  - C-REACTIVE PROTEIN INCREASED [None]
  - RED BLOOD CELL SEDIMENTATION RATE INCREASED [None]
  - SAPHO SYNDROME [None]
  - SHOULDER PAIN [None]
  - SYNOVITIS [None]
